FAERS Safety Report 24858750 (Version 1)
Quarter: 2025Q1

REPORT INFORMATION
  Report Type: Spontaneous
  Country: US (occurrence: US)
  Receive Date: 20250118
  Receipt Date: 20250118
  Transmission Date: 20250408
  Serious: No
  Sender: AUROBINDO
  Company Number: US-AUROBINDO-AUR-APL-2024-024364

PATIENT
  Age: 21 Year
  Sex: Female
  Weight: 69.399 kg

DRUGS (1)
  1. LEVONORGESTREL [Suspect]
     Active Substance: LEVONORGESTREL
     Indication: Sexual dysfunction
     Route: 065
     Dates: start: 20240419, end: 20240419

REACTIONS (11)
  - Asthenia [Recovered/Resolved]
  - Breast tenderness [Recovered/Resolved]
  - Chills [Recovered/Resolved]
  - Dizziness [Recovered/Resolved]
  - Muscle spasms [Recovered/Resolved]
  - Nausea [Recovered/Resolved]
  - Polymenorrhagia [Recovered/Resolved]
  - Tremor [Recovered/Resolved]
  - Heavy menstrual bleeding [Recovered/Resolved]
  - Feeling abnormal [Recovered/Resolved]
  - Emergency care [Recovered/Resolved]

NARRATIVE: CASE EVENT DATE: 20240428
